FAERS Safety Report 5996754-3 (Version None)
Quarter: 2008Q4

REPORT INFORMATION
  Report Type: 
  Country: None (occurrence: None)
  Receive Date: 20081212
  Receipt Date: 20081022
  Transmission Date: 20090506
  Serious: No
  Sender: FDA-Public Use
  Company Number: US-ABBOTT-08P-163-0483645-00

PATIENT
  Sex: Male
  Weight: 86.26 kg

DRUGS (2)
  1. HUMIRA [Suspect]
     Indication: CROHN'S DISEASE
     Route: 058
     Dates: start: 20080101, end: 20080911
  2. ACETAMINOPHEN [Concomitant]
     Indication: PAIN
     Route: 048

REACTIONS (5)
  - HYPERSENSITIVITY [None]
  - PRURITUS [None]
  - PSORIASIS [None]
  - RASH [None]
  - SOCIAL PHOBIA [None]
